FAERS Safety Report 9014389 (Version 1)
Quarter: 2013Q1

REPORT INFORMATION
  Report Type: Spontaneous
  Country: US (occurrence: US)
  Receive Date: 20130115
  Receipt Date: 20130115
  Transmission Date: 20140127
  Serious: No
  Sender: FDA-Public Use
  Company Number: US-B.I. PHARMACEUTICALS,INC./RIDGEFIELD-2013-BI-00433BP

PATIENT
  Age: 75 Year
  Sex: Female
  Weight: 57 kg

DRUGS (3)
  1. PRADAXA [Suspect]
     Indication: MITRAL VALVE PROLAPSE
     Dosage: 300 MG
     Route: 048
     Dates: start: 20120824, end: 20120826
  2. GLYBURIDE [Concomitant]
     Dosage: 5 MG
     Route: 048
     Dates: start: 2006
  3. METFORMIN [Concomitant]
     Dosage: 2000 MG
     Route: 048
     Dates: start: 2006

REACTIONS (1)
  - Dizziness [Recovered/Resolved]
